FAERS Safety Report 10896779 (Version 1)
Quarter: 2015Q1

REPORT INFORMATION
  Report Type: Spontaneous
  Country: US (occurrence: US)
  Receive Date: 20150309
  Receipt Date: 20150309
  Transmission Date: 20150721
  Serious: Yes (Death)
  Sender: FDA-Public Use
  Company Number: US-BANPHARM-20153659

PATIENT
  Age: 66 Year
  Sex: Female

DRUGS (11)
  1. METFORMIN [Suspect]
     Active Substance: METFORMIN HYDROCHLORIDE
  2. LORAZEPAM. [Suspect]
     Active Substance: LORAZEPAM
  3. BUPROPION [Suspect]
     Active Substance: BUPROPION
  4. IBUPROFEN UNKNOWN PRODUCT [Suspect]
     Active Substance: IBUPROFEN
  5. GABAPENTIN. [Suspect]
     Active Substance: GABAPENTIN
  6. ACETAMINOPHEN/ OXYCODONE [Suspect]
     Active Substance: ACETAMINOPHEN\OXYCODONE HYDROCHLORIDE
  7. ESTROGENS, CONJUGATED [Suspect]
     Active Substance: ESTROGENS, CONJUGATED
  8. DIPHENHYDRAMINE UNKNOWN PRODUCT [Suspect]
     Active Substance: DIPHENHYDRAMINE
  9. TRAMADOL [Suspect]
     Active Substance: TRAMADOL
  10. OXYBUTYNIN [Suspect]
     Active Substance: OXYBUTYNIN
  11. THYROID PREPARATION [Suspect]
     Active Substance: UNSPECIFIED INGREDIENT

REACTIONS (2)
  - Completed suicide [Fatal]
  - Exposure via ingestion [None]
